FAERS Safety Report 8380756-6 (Version None)
Quarter: 2012Q2

REPORT INFORMATION
  Report Type: 
  Country: None (occurrence: None)
  Receive Date: 20120523
  Receipt Date: 20120518
  Transmission Date: 20120825
  Serious: Yes (Other)
  Sender: FDA-Public Use
  Company Number: US-PFIZER INC-2012036956

PATIENT
  Sex: Male
  Weight: 96.145 kg

DRUGS (6)
  1. AMLODIPINE [Concomitant]
     Dosage: 5 MG, UNK
  2. CARVEDILOL [Concomitant]
     Dosage: 6.2 MG, UNK
  3. ENALAPRIL [Concomitant]
     Dosage: 10 MG, UNK
  4. LEVOXYL [Concomitant]
     Dosage: UNK MG, UNK
  5. SUTENT [Suspect]
     Indication: METASTATIC RENAL CELL CARCINOMA
     Dosage: 50 MG, DAILY, 4 WEEKS ON, 2 OFF
     Route: 048
     Dates: start: 20120127
  6. GLIPIZIDE [Concomitant]
     Indication: BLOOD GLUCOSE
     Dosage: 10 MG, AS NEEDED

REACTIONS (14)
  - DIARRHOEA [None]
  - THERAPEUTIC RESPONSE UNEXPECTED [None]
  - ENTERITIS INFECTIOUS [None]
  - BLOOD GLUCOSE DECREASED [None]
  - DYSPHAGIA [None]
  - FLATULENCE [None]
  - HAIR TEXTURE ABNORMAL [None]
  - DYSGEUSIA [None]
  - HAIR COLOUR CHANGES [None]
  - ENERGY INCREASED [None]
  - OROPHARYNGEAL PAIN [None]
  - WEIGHT INCREASED [None]
  - HYPERTENSION [None]
  - PAIN [None]
